FAERS Safety Report 10313434 (Version 1)
Quarter: 2014Q3

REPORT INFORMATION
  Report Type: Spontaneous
  Country: GB (occurrence: None)
  Receive Date: 20140716
  Receipt Date: 20140716
  Transmission Date: 20150326
  Serious: Yes (Disabling)
  Sender: FDA-Public Use
  Company Number: AUR-APL-2014-07385

PATIENT
  Age: 31 Year
  Sex: Female

DRUGS (5)
  1. TEGRETOL ( CARBAMAZEPINE) [Concomitant]
  2. KEPPRA ( LEVETIRACETAM) [Concomitant]
  3. LAMOTRIGINE (LAMOTRIGINE) UNKNOWN [Suspect]
     Active Substance: LAMOTRIGINE
     Indication: EPILEPSY
  4. TOPIRAMATE. [Concomitant]
     Active Substance: TOPIRAMATE
  5. MIRENA [Suspect]
     Active Substance: LEVONORGESTREL
     Indication: CONTRACEPTION
     Dates: start: 20140424, end: 20140626

REACTIONS (3)
  - Convulsion [None]
  - Malaise [None]
  - Drug interaction [None]

NARRATIVE: CASE EVENT DATE: 20140424
